FAERS Safety Report 16226192 (Version 2)
Quarter: 2019Q2

REPORT INFORMATION
  Report Type: Spontaneous
  Country: US (occurrence: US)
  Receive Date: 20190423
  Receipt Date: 20190617
  Transmission Date: 20190711
  Serious: Yes (Other)
  Sender: FDA-Public Use
  Company Number: US-BEH-2019101483

PATIENT
  Sex: Female

DRUGS (3)
  1. HAEGARDA [Suspect]
     Active Substance: HUMAN C1-ESTERASE INHIBITOR
     Indication: PROPHYLAXIS
  2. HAEGARDA [Suspect]
     Active Substance: HUMAN C1-ESTERASE INHIBITOR
     Indication: HEREDITARY ANGIOEDEMA
     Dosage: 6000 IU, BIW EVERY 3 DAYS
     Route: 058
     Dates: start: 20180808
  3. HAEGARDA [Suspect]
     Active Substance: HUMAN C1-ESTERASE INHIBITOR
     Indication: HEREDITARY ANGIOEDEMA

REACTIONS (5)
  - Treatment noncompliance [Recovered/Resolved]
  - Product distribution issue [Recovered/Resolved]
  - Pharyngeal swelling [Recovered/Resolved]
  - Product use in unapproved indication [Recovered/Resolved]
  - Hereditary angioedema [Recovered/Resolved]
